FAERS Safety Report 9554279 (Version 1)
Quarter: 2013Q3

REPORT INFORMATION
  Report Type: Spontaneous
  Country: US (occurrence: US)
  Receive Date: 20130925
  Receipt Date: 20130925
  Transmission Date: 20140515
  Serious: No
  Sender: FDA-Public Use
  Company Number: US-MYLANLABS-2013S1001302

PATIENT
  Age: 41 Year
  Sex: Female

DRUGS (2)
  1. ALENDRONATE SODIUM TABLETS USP [Suspect]
     Route: 048
     Dates: start: 19140110
  2. LEVOTHYROXINE [Concomitant]
     Route: 048

REACTIONS (2)
  - Drug dispensing error [Recovered/Resolved]
  - No adverse event [Recovered/Resolved]
